FAERS Safety Report 5568934-2 (Version None)
Quarter: 2007Q4

REPORT INFORMATION
  Report Type: 
  Country: None (occurrence: None)
  Receive Date: 20071220
  Receipt Date: 20070327
  Transmission Date: 20080405
  Serious: No
  Sender: FDA-Public Use
  Company Number: A0644855A

PATIENT
  Age: 72 Year
  Sex: Male

DRUGS (7)
  1. AVODART [Suspect]
     Indication: DRUG USE FOR UNKNOWN INDICATION
     Route: 039
     Dates: start: 20070317
  2. IRON [Concomitant]
  3. LEVOTHYROXINE SODIUM [Concomitant]
  4. LUNESTA [Concomitant]
  5. LORAZEPAM [Concomitant]
  6. AMITRIPTLINE HCL [Concomitant]
  7. PRILOSEC [Concomitant]

REACTIONS (3)
  - DRUG INEFFECTIVE [None]
  - EXPIRED DRUG ADMINISTERED [None]
  - INCORRECT ROUTE OF DRUG ADMINISTRATION [None]
